FAERS Safety Report 7117107-0 (Version None)
Quarter: 2010Q4

REPORT INFORMATION
  Report Type: 
  Country: None (occurrence: None)
  Receive Date: 20101122
  Receipt Date: 20101109
  Transmission Date: 20110411
  Serious: No
  Sender: FDA-Public Use
  Company Number: US-PFIZER INC-2010123903

PATIENT
  Sex: Female

DRUGS (2)
  1. NEURONTIN [Suspect]
     Indication: TRIGEMINAL NEURALGIA
     Dosage: UNK
     Route: 048
     Dates: start: 20060101, end: 20060101
  2. LYRICA [Suspect]
     Dosage: UNK

REACTIONS (4)
  - ASTHENIA [None]
  - DISTURBANCE IN ATTENTION [None]
  - THINKING ABNORMAL [None]
  - UNEVALUABLE EVENT [None]
